FAERS Safety Report 6526908-9 (Version None)
Quarter: 2010Q1

REPORT INFORMATION
  Report Type: 
  Country: None (occurrence: None)
  Receive Date: 20100104
  Receipt Date: 20100104
  Transmission Date: 20100710
  Serious: Yes (Other)
  Sender: FDA-Public Use
  Company Number: None

PATIENT
  Age: 58 Year
  Sex: Male
  Weight: 108.8633 kg

DRUGS (1)
  1. DIOVAN HCT [Suspect]
     Dosage: 320/12.5 1 PER DAY PO
     Route: 048
     Dates: start: 20050312, end: 20091015

REACTIONS (2)
  - METATARSALGIA [None]
  - PAIN IN EXTREMITY [None]
